FAERS Safety Report 15848282 (Version 1)
Quarter: 2019Q1

REPORT INFORMATION
  Report Type: Spontaneous
  Country: US (occurrence: US)
  Receive Date: 20190121
  Receipt Date: 20190121
  Transmission Date: 20190417
  Serious: No
  Sender: FDA-Public Use
  Company Number: US-PFIZER INC-2019022363

PATIENT
  Sex: Female

DRUGS (5)
  1. DOCETAXEL. [Suspect]
     Active Substance: DOCETAXEL
     Dosage: 107 MG, CYCLIC (6 CYCLES, EVERY THREE WEEKS)
     Dates: start: 20080415
  2. DOCETAXEL. [Suspect]
     Active Substance: DOCETAXEL
     Dosage: 108 MG, CYCLIC (6 CYCLES, EVERY THREE WEEKS)
     Dates: start: 20080415
  3. PARAPLATIN [Concomitant]
     Active Substance: CARBOPLATIN
     Dosage: UNK
  4. DOCETAXEL. [Suspect]
     Active Substance: DOCETAXEL
     Indication: BREAST CANCER
     Dosage: 128 MG, CYCLIC (6 CYCLES, EVERY THREE WEEKS)
     Dates: start: 20080415
  5. DOCETAXEL. [Suspect]
     Active Substance: DOCETAXEL
     Dosage: 110 MG, CYCLIC (6 CYCLES, EVERY THREE WEEKS)
     Dates: end: 20080730

REACTIONS (5)
  - Hair texture abnormal [Unknown]
  - Madarosis [Unknown]
  - Alopecia [Unknown]
  - Hair colour changes [Unknown]
  - Hair disorder [Unknown]
